FAERS Safety Report 21106480 (Version 1)
Quarter: 2022Q3

REPORT INFORMATION
  Report Type: Spontaneous
  Country: US (occurrence: None)
  Receive Date: 20220720
  Receipt Date: 20220720
  Transmission Date: 20221027
  Serious: Yes (Hospitalization)
  Sender: FDA-Public Use
  Company Number: None

PATIENT
  Sex: Female
  Weight: 52.3 kg

DRUGS (4)
  1. DEXAMETHASONE [Suspect]
     Active Substance: DEXAMETHASONE
     Dates: end: 20220619
  2. MERCAPTOPURINE [Suspect]
     Active Substance: MERCAPTOPURINE
     Indication: COVID-19
     Dates: end: 20220710
  3. METHOTREXATE [Suspect]
     Active Substance: METHOTREXATE
     Indication: COVID-19
     Dates: end: 20220706
  4. VINCRISTINE SULFATE [Suspect]
     Active Substance: VINCRISTINE SULFATE
     Indication: Drug therapy

REACTIONS (1)
  - Appendicitis [None]

NARRATIVE: CASE EVENT DATE: 20220717
